FAERS Safety Report 4783858-6 (Version None)
Quarter: 2005Q3

REPORT INFORMATION
  Report Type: 
  Country: None (occurrence: None)
  Receive Date: 20050929
  Receipt Date: 20050621
  Transmission Date: 20060218
  Serious: Yes (Hospitalization)
  Sender: FDA-Public Use
  Company Number: US-MERCK-0506USA03306

PATIENT
  Age: 50 Year
  Sex: Male
  Weight: 98 kg

DRUGS (5)
  1. VIOXX [Suspect]
     Indication: NEPHROLITHIASIS
     Route: 048
     Dates: start: 20001201, end: 20010101
  2. VIOXX [Suspect]
     Indication: PAIN
     Route: 048
     Dates: start: 20001201, end: 20010101
  3. TOPROL-XL [Concomitant]
     Indication: HYPERTENSION
     Route: 065
  4. ACCUPRIL [Concomitant]
     Indication: HYPERTENSION
     Route: 065
  5. ASPIRIN [Concomitant]
     Route: 065
     Dates: start: 20001201

REACTIONS (6)
  - CHEST PAIN [None]
  - HYPERTENSION [None]
  - JOINT SPRAIN [None]
  - MYOCARDIAL INFARCTION [None]
  - PANIC ATTACK [None]
  - POLYTRAUMATISM [None]
